FAERS Safety Report 9787830 (Version 3)
Quarter: 2014Q1

REPORT INFORMATION
  Report Type: Spontaneous
  Country: US (occurrence: US)
  Receive Date: 20131230
  Receipt Date: 20140207
  Transmission Date: 20141002
  Serious: No
  Sender: FDA-Public Use
  Company Number: US-PFIZER INC-2013371445

PATIENT
  Sex: Female

DRUGS (4)
  1. ENBREL [Suspect]
     Dosage: UNK
  2. ENBREL [Suspect]
     Dosage: UNK
  3. HUMIRA [Suspect]
     Dosage: UNK
  4. CIMZIA [Suspect]
     Dosage: UNK

REACTIONS (1)
  - Drug effect decreased [Unknown]
